FAERS Safety Report 13294212 (Version 1)
Quarter: 2017Q1

REPORT INFORMATION
  Report Type: Spontaneous
  Country: US (occurrence: US)
  Receive Date: 20170303
  Receipt Date: 20170303
  Transmission Date: 20170428
  Serious: Yes (Hospitalization, Other)
  Sender: FDA-Public Use
  Company Number: US-SA-2017SA033100

PATIENT
  Age: 68 Year
  Sex: Female

DRUGS (1)
  1. LEFLUNOMIDE  WINTHROP [Suspect]
     Active Substance: LEFLUNOMIDE
     Route: 048
     Dates: start: 20141021

REACTIONS (3)
  - Mastitis [Unknown]
  - Immunodeficiency [Unknown]
  - Sepsis [Unknown]
